FAERS Safety Report 16881805 (Version 2)
Quarter: 2019Q4

REPORT INFORMATION
  Report Type: Spontaneous
  Country: US (occurrence: US)
  Receive Date: 20191003
  Receipt Date: 20191129
  Transmission Date: 20200122
  Serious: No
  Sender: FDA-Public Use
  Company Number: US-CELGENEUS-USA-20190909656

PATIENT
  Sex: Female

DRUGS (1)
  1. REVLIMID [Suspect]
     Active Substance: LENALIDOMIDE
     Indication: PLASMA CELL MYELOMA
     Dosage: 25 MILLIGRAM
     Route: 048
     Dates: start: 20190912

REACTIONS (12)
  - Night sweats [Unknown]
  - Paraesthesia [Unknown]
  - Vision blurred [Unknown]
  - Hyperhidrosis [Unknown]
  - Constipation [Unknown]
  - Dry mouth [Unknown]
  - Insomnia [Unknown]
  - Confusional state [Unknown]
  - Mood altered [Unknown]
  - Nausea [Unknown]
  - Fatigue [Unknown]
  - Dry skin [Unknown]

NARRATIVE: CASE EVENT DATE: 2019
